FAERS Safety Report 5638898-1 (Version None)
Quarter: 2008Q1

REPORT INFORMATION
  Report Type: 
  Country: None (occurrence: None)
  Receive Date: 20080226
  Receipt Date: 20080219
  Transmission Date: 20080703
  Serious: Yes (Other)
  Sender: FDA-Public Use
  Company Number: GB-ROCHE-549014

PATIENT
  Age: 37 Year
  Sex: Female
  Weight: 63 kg

DRUGS (2)
  1. ISOTRETINOIN [Suspect]
     Indication: ACNE
     Route: 048
     Dates: start: 20071101, end: 20071231
  2. MINOCYCLINE HYDROCHLORIDE [Concomitant]
     Indication: ACNE
     Route: 048

REACTIONS (2)
  - OPTIC DISC DISORDER [None]
  - VISUAL DISTURBANCE [None]
